FAERS Safety Report 14222379 (Version 7)
Quarter: 2018Q2

REPORT INFORMATION
  Report Type: Report from Study
  Country: AU (occurrence: AU)
  Receive Date: 20171124
  Receipt Date: 20180522
  Transmission Date: 20180711
  Serious: Yes (Hospitalization, Disabling, Other)
  Sender: FDA-Public Use
  Company Number: PHHY2017AU171678

PATIENT
  Age: 41 Year
  Sex: Female
  Weight: 54.9 kg

DRUGS (21)
  1. CYCLOPHOSPHAMIDE. [Suspect]
     Active Substance: CYCLOPHOSPHAMIDE
     Indication: PRODUCT USED FOR UNKNOWN INDICATION
     Dosage: UNK
     Route: 065
     Dates: start: 200208, end: 200310
  2. ISONIAZID. [Suspect]
     Active Substance: ISONIAZID
     Indication: TUBERCULOSIS
     Dosage: 100 MG, TID
     Route: 048
     Dates: start: 20160205, end: 20160503
  3. BACTRIM [Concomitant]
     Active Substance: SULFAMETHOXAZOLE\TRIMETHOPRIM
     Indication: PRODUCT USED FOR UNKNOWN INDICATION
     Dosage: 0.5 DF (160/800MG), QD
     Route: 048
     Dates: start: 20160218, end: 20160221
  4. HYDROXYCHLOROQUINE [Concomitant]
     Active Substance: HYDROXYCHLOROQUINE
     Indication: SYSTEMIC LUPUS ERYTHEMATOSUS
     Dosage: 200 MG, QD
     Route: 065
     Dates: start: 2003, end: 20130702
  5. METHYLPREDNISOLONE. [Concomitant]
     Active Substance: METHYLPREDNISOLONE
     Indication: PRODUCT USED FOR UNKNOWN INDICATION
     Dosage: 1 G, QD
     Route: 042
     Dates: start: 20160222, end: 20160226
  6. PREDNISOLONE. [Concomitant]
     Active Substance: PREDNISOLONE
     Dosage: 20 MG, QD
     Route: 048
     Dates: end: 20151119
  7. HYDROCORTISON [Concomitant]
     Active Substance: HYDROCORTISONE
     Indication: PRODUCT USED FOR UNKNOWN INDICATION
     Dosage: 1 % 10 MG/GM,TDS
     Route: 061
     Dates: start: 20160226, end: 201604
  8. FEXOFENADINE [Concomitant]
     Active Substance: FEXOFENADINE\FEXOFENADINE HYDROCHLORIDE
     Indication: PRODUCT USED FOR UNKNOWN INDICATION
     Dosage: 180 MG, QD
     Route: 065
     Dates: start: 20160226, end: 201604
  9. PREDNISOLONE. [Concomitant]
     Active Substance: PREDNISOLONE
     Indication: SYSTEMIC LUPUS ERYTHEMATOSUS
     Dosage: 5 MG, QD
     Route: 065
     Dates: start: 2003, end: 20130702
  10. PREDNISOLONE. [Concomitant]
     Active Substance: PREDNISOLONE
     Dosage: 50 MG, QD
     Route: 048
     Dates: start: 20151120, end: 20160201
  11. MYFORTIC [Suspect]
     Active Substance: MYCOPHENOLATE SODIUM
     Indication: LUPUS NEPHRITIS
     Dosage: 2 DF(360 MG), BID (1440MG)
     Route: 048
     Dates: start: 20130704, end: 20160209
  12. MYFORTIC [Suspect]
     Active Substance: MYCOPHENOLATE SODIUM
     Dosage: 720 MG, UNK
     Route: 048
     Dates: start: 20160229, end: 20160526
  13. PYRAZINAMIDE. [Suspect]
     Active Substance: PYRAZINAMIDE
     Indication: TUBERCULOSIS
     Dosage: 4 DF (500 MG), QD
     Route: 048
     Dates: start: 20160205, end: 20160211
  14. MOMETASONE [Concomitant]
     Active Substance: MOMETASONE
     Indication: PRODUCT USED FOR UNKNOWN INDICATION
     Dosage: UNK
     Route: 061
     Dates: start: 20160429, end: 20160520
  15. METHYLPREDNISOLONE. [Concomitant]
     Active Substance: METHYLPREDNISOLONE
     Dosage: UNK
     Route: 061
     Dates: start: 20160429, end: 20160520
  16. MYFORTIC [Suspect]
     Active Substance: MYCOPHENOLATE SODIUM
     Dosage: 1440 MG, UNK
     Route: 048
     Dates: start: 20160526
  17. PYRAZINAMIDE. [Suspect]
     Active Substance: PYRAZINAMIDE
     Dosage: 500 MG, TID
     Route: 048
     Dates: start: 20160211, end: 20160503
  18. RIFAMPICIN [Suspect]
     Active Substance: RIFAMPIN
     Indication: TUBERCULOSIS
     Dosage: 300 MG, BID
     Route: 048
     Dates: start: 20160205, end: 20160503
  19. PENTAMIDINE [Concomitant]
     Active Substance: PENTAMIDINE
     Indication: PRODUCT USED FOR UNKNOWN INDICATION
     Dosage: 300 MG, INH, MONTHLY
     Route: 065
     Dates: start: 20160226
  20. PROMETHAZINE [Concomitant]
     Active Substance: PROMETHAZINE\PROMETHAZINE HYDROCHLORIDE
     Indication: PRODUCT USED FOR UNKNOWN INDICATION
     Dosage: 50 MCG/ML, PRN
     Route: 048
     Dates: start: 20160226, end: 201604
  21. METHOTREXATE. [Concomitant]
     Active Substance: METHOTREXATE
     Indication: SYSTEMIC LUPUS ERYTHEMATOSUS
     Dosage: 20 MG, QW
     Route: 065
     Dates: start: 20110118, end: 2013

REACTIONS (24)
  - Rash [Recovered/Resolved]
  - Arthropathy [Recovered/Resolved]
  - Antiacetylcholine receptor antibody positive [Unknown]
  - Rash [Recovering/Resolving]
  - Circulatory collapse [Recovered/Resolved]
  - Syncope [Recovered/Resolved]
  - Systemic lupus erythematosus [Recovering/Resolving]
  - Pruritus [Not Recovered/Not Resolved]
  - Liver function test abnormal [Recovered/Resolved]
  - Myasthenia gravis [Not Recovered/Not Resolved]
  - Acute kidney injury [Recovered/Resolved]
  - Pyrexia [Recovered/Resolved]
  - Extradural haematoma [Recovered/Resolved with Sequelae]
  - Dermatitis [Recovered/Resolved]
  - Disease recurrence [Recovered/Resolved]
  - Eczema [Recovering/Resolving]
  - Muscle spasms [Not Recovered/Not Resolved]
  - Eyelid ptosis [Recovering/Resolving]
  - Asthenia [Recovering/Resolving]
  - Systemic lupus erythematosus [Recovered/Resolved]
  - Blood magnesium decreased [Unknown]
  - Diplopia [Recovering/Resolving]
  - Lupus nephritis [Recovered/Resolved]
  - Lupus nephritis [Recovered/Resolved]

NARRATIVE: CASE EVENT DATE: 20130703
